FAERS Safety Report 5396800-4 (Version None)
Quarter: 2007Q3

REPORT INFORMATION
  Report Type: 
  Country: None (occurrence: None)
  Receive Date: 20070725
  Receipt Date: 20060927
  Transmission Date: 20080115
  Serious: No
  Sender: FDA-Public Use
  Company Number: US-AMGEN-KDL195071

PATIENT
  Sex: Male
  Weight: 65.8 kg

DRUGS (2)
  1. PROCRIT [Suspect]
     Indication: ANAEMIA
     Dates: start: 20050101
  2. CORTICOSTEROIDS [Concomitant]

REACTIONS (1)
  - RASH PUSTULAR [None]
